FAERS Safety Report 21501627 (Version 1)
Quarter: 2022Q4

REPORT INFORMATION
  Report Type: Spontaneous
  Country: US (occurrence: None)
  Receive Date: 20221024
  Receipt Date: 20221024
  Transmission Date: 20230113
  Serious: No
  Sender: FDA-Public Use
  Company Number: None

PATIENT
  Sex: Female

DRUGS (11)
  1. PROGESTERONE INJECTION USP [Suspect]
     Active Substance: PROGESTERONE
     Indication: Infertility female
     Dosage: INJECT 1.5 ML IN THE MUSCLE EVERY DAY?
     Route: 030
     Dates: start: 20220916
  2. LEUPROLIDE [Concomitant]
     Active Substance: LEUPROLIDE
  3. FOLLISTIM AQ [Concomitant]
     Active Substance: FOLLITROPIN
  4. FOLLISTIM AQ [Concomitant]
     Active Substance: FOLLITROPIN
  5. FOLLISTIM AQ INJ [Concomitant]
  6. FOLLISTIM AQ INJ [Concomitant]
  7. FYREMADEL SOL [Concomitant]
  8. FYDREMADEL [Concomitant]
  9. MENOPUR INJ [Concomitant]
  10. PRENATAL TAB [Concomitant]
  11. VITAMIN D3 [Concomitant]
     Active Substance: CHOLECALCIFEROL

REACTIONS (2)
  - Pregnancy [None]
  - Drug exposure before pregnancy [None]
